FAERS Safety Report 15310389 (Version 1)
Quarter: 2018Q3

REPORT INFORMATION
  Report Type: Spontaneous
  Country: JP (occurrence: JP)
  Receive Date: 20180823
  Receipt Date: 20180823
  Transmission Date: 20181010
  Serious: Yes (Other)
  Sender: FDA-Public Use
  Company Number: JP-EISAI MEDICAL RESEARCH-EC-2018-042518

PATIENT
  Sex: Male

DRUGS (1)
  1. HALAVEN [Suspect]
     Active Substance: ERIBULIN MESYLATE
     Indication: MYXOFIBROSARCOMA
     Route: 041
     Dates: start: 20170830

REACTIONS (5)
  - Alopecia [Not Recovered/Not Resolved]
  - Hyperuricaemia [Recovering/Resolving]
  - Influenza [Recovering/Resolving]
  - Aspartate aminotransferase increased [Recovering/Resolving]
  - Neutropenia [Recovered/Resolved]

NARRATIVE: CASE EVENT DATE: 20170914
